FAERS Safety Report 6346669-6 (Version None)
Quarter: 2009Q3

REPORT INFORMATION
  Report Type: 
  Country: None (occurrence: None)
  Receive Date: 20090904
  Receipt Date: 20090821
  Transmission Date: 20100115
  Serious: Yes (Other)
  Sender: FDA-Public Use
  Company Number: 2009S1014940

PATIENT
  Age: 75 Year
  Sex: Female

DRUGS (4)
  1. RANITIDINE HCL [Suspect]
     Indication: GASTRITIS
     Dosage: 150 MG, ORAL; TWICE A DAY
     Route: 048
     Dates: start: 20090701, end: 20090728
  2. PANTOPRAZOLE SODIUM [Suspect]
     Indication: GASTRITIS
     Dosage: 20 MG, ORAL
     Route: 048
     Dates: start: 20090701, end: 20090728
  3. CENTYL (BENDROFLUMETHIAZIDE) [Concomitant]
  4. TRIOBE (HEPAGRISEVIT FORTE-N) [Concomitant]

REACTIONS (7)
  - CONFUSIONAL STATE [None]
  - DRUG INTERACTION [None]
  - FATIGUE [None]
  - HALLUCINATION, VISUAL [None]
  - LISTLESS [None]
  - NEUROLOGICAL SYMPTOM [None]
  - VISION BLURRED [None]
